FAERS Safety Report 10065622 (Version 1)
Quarter: 2014Q2

REPORT INFORMATION
  Report Type: Spontaneous
  Country: US (occurrence: None)
  Receive Date: 20140401
  Receipt Date: 20140401
  Transmission Date: 20141212
  Serious: Yes (Other)
  Sender: FDA-Public Use
  Company Number: PHEH2013US018526

PATIENT
  Age: 84 Year
  Sex: Female
  Weight: 40.8 kg

DRUGS (8)
  1. EXELON PATCH [Suspect]
     Route: 062
  2. RISPERDAL [Concomitant]
  3. LEVOTHYROXINE [Concomitant]
  4. METOPROLOL [Concomitant]
  5. LORAZEPAM [Concomitant]
  6. ZINC [Concomitant]
  7. B-12 [Concomitant]
  8. MULTI-VIT (VITAMINS NOS) [Concomitant]

REACTIONS (4)
  - Blister [None]
  - Constipation [None]
  - Erythema [None]
  - Cystitis [None]
